FAERS Safety Report 7130489-9 (Version None)
Quarter: 2010Q4

REPORT INFORMATION
  Report Type: 
  Country: None (occurrence: None)
  Receive Date: 20101201
  Receipt Date: 20101118
  Transmission Date: 20110411
  Serious: Yes (Hospitalization, Other)
  Sender: FDA-Public Use
  Company Number: PHHY2010JP61586

PATIENT
  Age: 69 Year
  Sex: Male

DRUGS (6)
  1. DIOVAN [Suspect]
     Indication: HYPERTENSION
     Dosage: 160 MG
     Route: 048
     Dates: start: 20060101
  2. DIOVAN [Suspect]
     Dosage: 10 MG DAILY
     Route: 048
  3. EPLERENONE [Concomitant]
  4. DOXAZOSIN MESYLATE [Concomitant]
     Indication: BLOOD PRESSURE MANAGEMENT
  5. NORVASC [Concomitant]
     Dosage: UNK
     Route: 048
     Dates: start: 20060101
  6. LASIX [Concomitant]
     Dosage: UNK
     Route: 048
     Dates: start: 20060101

REACTIONS (5)
  - BLOOD UREA INCREASED [None]
  - PAIN [None]
  - RENAL ARTERY STENOSIS [None]
  - RENAL FAILURE ACUTE [None]
  - RENAL IMPAIRMENT [None]
